FAERS Safety Report 25105435 (Version 1)
Quarter: 2025Q1

REPORT INFORMATION
  Report Type: Report from Study
  Country: FR (occurrence: FR)
  Receive Date: 20250321
  Receipt Date: 20250321
  Transmission Date: 20250409
  Serious: Yes (Death)
  Sender: SYNDAX
  Company Number: FR-SYNDAX PHARMACEUTICALS, INC.-2025FR000234

PATIENT

DRUGS (1)
  1. REVUMENIB SESQUIFUMARATE [Suspect]
     Active Substance: REVUMENIB SESQUIFUMARATE
     Indication: Product used for unknown indication

REACTIONS (1)
  - Death [Fatal]
